FAERS Safety Report 8139587-4 (Version None)
Quarter: 2012Q1

REPORT INFORMATION
  Report Type: 
  Country: None (occurrence: None)
  Receive Date: 20120215
  Receipt Date: 20120202
  Transmission Date: 20120608
  Serious: Yes (Other)
  Sender: FDA-Public Use
  Company Number: PHHY2009CA27370

PATIENT
  Sex: Male

DRUGS (1)
  1. SANDOSTATIN LAR [Suspect]
     Indication: METASTATIC CARCINOID TUMOUR
     Dosage: 60 MG, EVERY 4 WEEKS
     Route: 030
     Dates: start: 20060926

REACTIONS (7)
  - LIVER DISORDER [None]
  - PYREXIA [None]
  - CHOLELITHIASIS [None]
  - ABDOMINAL PAIN [None]
  - FOOD POISONING [None]
  - INFLAMMATION [None]
  - HEPATIC PAIN [None]
